FAERS Safety Report 4357204-6 (Version None)
Quarter: 2004Q2

REPORT INFORMATION
  Report Type: 
  Country: None (occurrence: None)
  Receive Date: 20040512
  Receipt Date: 20040512
  Transmission Date: 20050107
  Serious: Yes (Death)
  Sender: FDA-Public Use
  Company Number: None

PATIENT
  Age: 60 Year
  Sex: Male
  Weight: 87.3 kg

DRUGS (2)
  1. TAXOTERE [Suspect]
     Indication: LARYNGEAL CANCER RECURRENT
     Dosage: 64 MG OVER 1 HOU INTRAVENOUS
     Route: 042
     Dates: start: 20040421, end: 20040428
  2. IRINOTECAN PHARMACIA [Suspect]
     Indication: LARYNGEAL CANCER RECURRENT
     Dosage: 109 MG OVER 35 MI INTRAVENOUS
     Route: 042
     Dates: start: 20040421, end: 20040428

REACTIONS (14)
  - ABDOMINAL PAIN [None]
  - ANOREXIA [None]
  - ASCITES [None]
  - ATELECTASIS [None]
  - CONFUSIONAL STATE [None]
  - DIARRHOEA [None]
  - DISEASE PROGRESSION [None]
  - DYSPNOEA AT REST [None]
  - FLUID INTAKE REDUCED [None]
  - HAEMOPTYSIS [None]
  - NAUSEA [None]
  - PLEURAL EFFUSION [None]
  - RESPIRATORY DISTRESS [None]
  - VOMITING [None]
